FAERS Safety Report 7698840-9 (Version None)
Quarter: 2011Q3

REPORT INFORMATION
  Report Type: 
  Country: None (occurrence: None)
  Receive Date: 20110819
  Receipt Date: 20080122
  Transmission Date: 20111222
  Serious: Yes (Other)
  Sender: FDA-Public Use
  Company Number: US-PFIZER INC-2008009253

PATIENT
  Sex: Female

DRUGS (2)
  1. LORTAB [Concomitant]
  2. CHANTIX [Suspect]

REACTIONS (2)
  - ABNORMAL DREAMS [None]
  - HALLUCINATION [None]
